FAERS Safety Report 5148769-5 (Version None)
Quarter: 2006Q4

REPORT INFORMATION
  Report Type: 
  Country: None (occurrence: None)
  Receive Date: 20061107
  Receipt Date: 20061023
  Transmission Date: 20070319
  Serious: Yes (Other)
  Sender: FDA-Public Use
  Company Number: 2006US-04198

PATIENT
  Age: 18 Year

DRUGS (2)
  1. ISOTRETINOIN [Suspect]
     Dosage: UNK, UNK, UNK
  2. DAPSONE [Suspect]
     Dosage: UNK, UNK, UNK

REACTIONS (1)
  - HEPATIC FAILURE [None]
